FAERS Safety Report 9357326 (Version 1)
Quarter: 2013Q2

REPORT INFORMATION
  Report Type: Report from Study
  Country: US (occurrence: US)
  Receive Date: 20130620
  Receipt Date: 20130620
  Transmission Date: 20140414
  Serious: Yes (Other)
  Sender: FDA-Public Use
  Company Number: US-ROCHE-1195705

PATIENT
  Sex: Female
  Weight: 75.82 kg

DRUGS (3)
  1. XELODA [Suspect]
     Indication: COLORECTAL CANCER METASTATIC
     Dosage: 19/JUN/2013
     Route: 048
     Dates: start: 20130222
  2. OXYCODONE [Concomitant]
     Indication: PAIN
     Route: 048
     Dates: start: 20090101
  3. OXYCODONE [Concomitant]
     Route: 048

REACTIONS (11)
  - Constipation [Not Recovered/Not Resolved]
  - Abdominal pain [Not Recovered/Not Resolved]
  - Chest pain [Not Recovered/Not Resolved]
  - Pain [Not Recovered/Not Resolved]
  - Asthenia [Recovering/Resolving]
  - Nausea [Not Recovered/Not Resolved]
  - Vomiting [Recovered/Resolved]
  - Decreased appetite [Unknown]
  - Asthenia [Unknown]
  - Chromaturia [Unknown]
  - Ocular icterus [Unknown]
